FAERS Safety Report 5443330-7 (Version None)
Quarter: 2007Q3

REPORT INFORMATION
  Report Type: 
  Country: None (occurrence: None)
  Receive Date: 20070905
  Receipt Date: 20070827
  Transmission Date: 20080115
  Serious: No
  Sender: FDA-Public Use
  Company Number: JP-ASTRAZENECA-2007AP04527

PATIENT
  Age: 15433 Day
  Sex: Female
  Weight: 51 kg

DRUGS (10)
  1. DIPRIVAN [Suspect]
     Indication: INDUCTION AND MAINTENANCE OF ANAESTHESIA
     Route: 042
     Dates: start: 20070718, end: 20070718
  2. ULTIVA [Suspect]
     Indication: INDUCTION AND MAINTENANCE OF ANAESTHESIA
     Route: 041
     Dates: start: 20070718, end: 20070718
  3. TEGRETOL [Suspect]
     Indication: EPILEPSY
     Route: 048
     Dates: start: 19750101
  4. NAROPIN [Concomitant]
     Indication: PAIN
     Route: 008
     Dates: start: 20070718, end: 20070718
  5. NAROPIN [Concomitant]
     Route: 008
     Dates: start: 20070718, end: 20070718
  6. MUSCULAX [Concomitant]
     Indication: HYPOTONIA
     Route: 042
     Dates: start: 20070718, end: 20070718
  7. FENTANEST [Concomitant]
     Indication: PAIN
     Route: 042
     Dates: start: 20070718, end: 20070718
  8. FENTANEST [Concomitant]
     Route: 041
     Dates: start: 20070718, end: 20070718
  9. ATROPINE [Concomitant]
     Indication: BRADYCARDIA
     Route: 042
     Dates: start: 20070718, end: 20070718
  10. EPHEDRIN [Concomitant]
     Indication: HYPOTENSION
     Route: 042
     Dates: start: 20070718, end: 20070718

REACTIONS (1)
  - ALTERED STATE OF CONSCIOUSNESS [None]
